FAERS Safety Report 7876865-8 (Version None)
Quarter: 2011Q4

REPORT INFORMATION
  Report Type: 
  Country: None (occurrence: None)
  Receive Date: 20111031
  Receipt Date: 20111018
  Transmission Date: 20120403
  Serious: Yes (Hospitalization)
  Sender: FDA-Public Use
  Company Number: PHHY2011US61666

PATIENT
  Sex: Female

DRUGS (27)
  1. AMBIEN [Concomitant]
  2. DIOVAN HCT [Concomitant]
  3. TOLTERODINE TARTRATE [Concomitant]
  4. ASPIRIN [Concomitant]
     Dosage: 325 MG, DAILY
     Route: 048
  5. SENNA [Concomitant]
     Dosage: 1 DF, DAILY
     Route: 048
  6. SODIUM CHLORIDE INJ [Concomitant]
     Dosage: 3 ML, Q8H
  7. LOVENOX [Concomitant]
  8. LUNESTA [Concomitant]
     Dosage: 3 MG, QHS
     Route: 048
  9. VITAMIN D [Concomitant]
     Dosage: 10000 UNITS DAILY FOR 1 MONTH AND THEN 5000 UNITS DAILY
     Route: 048
  10. L-METHYLFOLATE [Concomitant]
     Dosage: 1 DF, DAILY
     Route: 048
  11. LIDOCAINE [Concomitant]
     Dosage: 12.5 MG, QHS
  12. DEXTROSE [Concomitant]
     Dosage: 8 MG, QD
     Route: 048
  13. HYZAAR [Concomitant]
     Dosage: 100MG LOSARTAN+ HYDROCHLOROTHIAZIDE 12.5MG, -1 DF, DAILY
     Route: 048
  14. FAMPRIDINE [Concomitant]
     Dosage: 5 MG, BID
     Route: 048
  15. IMMUNOGLOBULINS, NORMAL HUMAN [Concomitant]
     Dosage: 400 MG/KG, QD
     Route: 042
  16. TOVIAZ [Concomitant]
     Indication: MICTURITION URGENCY
     Dosage: 8 MG, QD
     Route: 048
  17. RILUTEK [Concomitant]
  18. KLONOPIN [Concomitant]
     Dosage: 0.5 MG, TID
     Route: 048
  19. CLARITIN [Concomitant]
     Dosage: 10 MG, DAILY
     Route: 048
  20. BENEFIBER [Concomitant]
     Dosage: TAKE 1 PACKET BY MOUTH TWICE DAILY WITH MEALS
  21. LEXAPRO [Concomitant]
     Dosage: 30 MG, DAILY
     Route: 048
  22. COLACE [Concomitant]
     Dosage: 100 MG, BID
  23. ZOLPIDEM [Concomitant]
  24. GILENYA [Suspect]
     Indication: MULTIPLE SCLEROSIS
     Dosage: 0.5 MG, DAILY
     Route: 048
     Dates: start: 20110501
  25. ENOXAPARIN [Concomitant]
  26. MAGNESIUM CITRATE [Concomitant]
  27. MILK OF MAGNESIA TAB [Concomitant]

REACTIONS (35)
  - NEUROPATHY PERIPHERAL [None]
  - MUSCULAR WEAKNESS [None]
  - ASTHENIA [None]
  - DYSARTHRIA [None]
  - MOTOR DYSFUNCTION [None]
  - BLOOD ALBUMIN DECREASED [None]
  - LYMPHOCYTE COUNT INCREASED [None]
  - CONSTIPATION [None]
  - RELAPSING-REMITTING MULTIPLE SCLEROSIS [None]
  - IMMUNODEFICIENCY [None]
  - MUSCLE CONTRACTIONS INVOLUNTARY [None]
  - HYPOTONIA [None]
  - RED BLOOD CELL COUNT DECREASED [None]
  - LYMPHOCYTE COUNT DECREASED [None]
  - ATROPHY [None]
  - APATHY [None]
  - BLOOD PRESSURE DECREASED [None]
  - CRYING [None]
  - NEUROGENIC BLADDER [None]
  - FINGER DEFORMITY [None]
  - MONOCYTE COUNT INCREASED [None]
  - AMYOTROPHIC LATERAL SCLEROSIS [None]
  - NERVOUS SYSTEM DISORDER [None]
  - BALANCE DISORDER [None]
  - PROTEIN TOTAL DECREASED [None]
  - HYPOKINESIA [None]
  - GAIT DISTURBANCE [None]
  - MOBILITY DECREASED [None]
  - EMOTIONAL DISORDER [None]
  - MALAISE [None]
  - BLOOD IMMUNOGLOBULIN G INCREASED [None]
  - BLOOD CHLORIDE INCREASED [None]
  - URINARY INCONTINENCE [None]
  - FLATULENCE [None]
  - WHITE BLOOD CELL COUNT DECREASED [None]
